FAERS Safety Report 7920348-3 (Version None)
Quarter: 2011Q4

REPORT INFORMATION
  Report Type: 
  Country: None (occurrence: None)
  Receive Date: 20111117
  Receipt Date: 20111107
  Transmission Date: 20120403
  Serious: Yes (Other)
  Sender: FDA-Public Use
  Company Number: CA-ELI_LILLY_AND_COMPANY-CA201111001933

PATIENT
  Sex: Male

DRUGS (6)
  1. ZYPREXA [Suspect]
     Dosage: 10 MG, QD
  2. ZYPREXA [Suspect]
     Dosage: 7.5 MG, EACH EVENING
  3. RISPERDAL [Concomitant]
  4. TOPIRAMATE [Concomitant]
  5. DIAZEPAM [Concomitant]
  6. CLONAZEPAM [Concomitant]

REACTIONS (4)
  - BLOOD TRIGLYCERIDES INCREASED [None]
  - BLINDNESS [None]
  - DIABETES MELLITUS [None]
  - BLOOD CHOLESTEROL INCREASED [None]
